FAERS Safety Report 8398043-9 (Version None)
Quarter: 2012Q2

REPORT INFORMATION
  Report Type: 
  Country: None (occurrence: None)
  Receive Date: 20120531
  Receipt Date: 20120523
  Transmission Date: 20120825
  Serious: Yes (Other)
  Sender: FDA-Public Use
  Company Number: DE-ASTELLAS-2012US005024

PATIENT
  Sex: Male

DRUGS (1)
  1. TARCEVA [Suspect]
     Indication: METASTASES TO LUNG
     Dosage: UNK
     Route: 048
     Dates: start: 20120509

REACTIONS (2)
  - RASH [None]
  - AMNESIA [None]
